FAERS Safety Report 4657534-4 (Version None)
Quarter: 2005Q2

REPORT INFORMATION
  Report Type: 
  Country: None (occurrence: None)
  Receive Date: 20050509
  Receipt Date: 20050509
  Transmission Date: 20051028
  Serious: Yes (Other)
  Sender: FDA-Public Use
  Company Number: None

PATIENT
  Age: 33 Year
  Sex: Female
  Weight: 133.8111 kg

DRUGS (2)
  1. PROTOPIC [Suspect]
     Indication: ECZEMA
     Dosage: EVERY DAY CUTANEOUS
     Route: 003
     Dates: start: 20020201, end: 20041230
  2. PREDNISONE [Suspect]
     Indication: ECZEMA
     Dosage: 80 MG EVERY 2 DAYS ORAL
     Route: 048
     Dates: start: 20020201, end: 20050504

REACTIONS (2)
  - LYMPHADENOPATHY [None]
  - RENAL CELL CARCINOMA STAGE UNSPECIFIED [None]
